FAERS Safety Report 18828368 (Version 1)
Quarter: 2021Q1

REPORT INFORMATION
  Report Type: Spontaneous
  Country: US (occurrence: US)
  Receive Date: 20210201
  Receipt Date: 20210201
  Transmission Date: 20210419
  Serious: No
  Sender: FDA-Public Use
  Company Number: US-ABBVIE-20K-163-3513100-00

PATIENT
  Age: 47 Year
  Sex: Female
  Weight: 88.53 kg

DRUGS (3)
  1. TRIAMTERENE. [Concomitant]
     Active Substance: TRIAMTERENE
     Indication: HYPERTENSION
  2. SIMVASTATIN. [Concomitant]
     Active Substance: SIMVASTATIN
     Indication: BLOOD CHOLESTEROL INCREASED
  3. HUMIRA [Suspect]
     Active Substance: ADALIMUMAB
     Indication: HIDRADENITIS
     Route: 058
     Dates: start: 201806

REACTIONS (7)
  - Injection site haemorrhage [Recovered/Resolved]
  - Incorrect dose administered [Recovered/Resolved]
  - Device issue [Recovered/Resolved]
  - Hidradenitis [Not Recovered/Not Resolved]
  - Injection site papule [Recovered/Resolved]
  - Skin abrasion [Not Recovered/Not Resolved]
  - Skin erosion [Not Recovered/Not Resolved]

NARRATIVE: CASE EVENT DATE: 202007
